FAERS Safety Report 6819772-1 (Version None)
Quarter: 2010Q3

REPORT INFORMATION
  Report Type: 
  Country: None (occurrence: None)
  Receive Date: 20100707
  Receipt Date: 20100623
  Transmission Date: 20110219
  Serious: Yes (Other)
  Sender: FDA-Public Use
  Company Number: PHHY2010US21529

PATIENT
  Sex: Female

DRUGS (6)
  1. RECLAST [Suspect]
     Dosage: UNK
     Dates: start: 20090327
  2. CHEMOTHERAPEUTICS NOS [Concomitant]
  3. SIMVASTATIN [Concomitant]
     Dosage: 20 MG, UNK
  4. FISH OIL [Concomitant]
  5. CALCIUM CARBONATE [Concomitant]
     Dosage: 1800 MG, UNK
  6. VITAMIN D [Concomitant]

REACTIONS (1)
  - TOOTH DISORDER [None]
